FAERS Safety Report 9646194 (Version 2)
Quarter: 2014Q1

REPORT INFORMATION
  Report Type: Spontaneous
  Country: CA (occurrence: CA)
  Receive Date: 20131025
  Receipt Date: 20140117
  Transmission Date: 20141002
  Serious: Yes (Hospitalization, Other)
  Sender: FDA-Public Use
  Company Number: CA-OPTIMER-20130413

PATIENT
  Age: 77 Year
  Sex: Male
  Weight: 42.63 kg

DRUGS (7)
  1. DIFICID [Suspect]
     Indication: CLOSTRIDIUM DIFFICILE COLITIS
     Dosage: 200 MG, BID
     Route: 048
     Dates: start: 20131002
  2. DIFICID [Suspect]
     Dosage: 200 MG, BID
     Route: 048
     Dates: start: 20131213, end: 20131223
  3. DIFICID [Suspect]
     Dosage: 200 MG, BID
     Route: 048
     Dates: start: 20140102
  4. SINEMET [Concomitant]
     Indication: PARKINSON^S DISEASE
     Dosage: 100/25
     Route: 048
  5. CITALOPRAM [Concomitant]
     Indication: PARKINSON^S DISEASE
     Dosage: UNK
  6. NOVO-LORAZEM [Concomitant]
     Indication: PARKINSON^S DISEASE
     Dosage: UNK
  7. FLORASTOR [Concomitant]
     Indication: DIARRHOEA
     Dosage: UNK

REACTIONS (3)
  - Clostridium difficile colitis [Not Recovered/Not Resolved]
  - Disease recurrence [Not Recovered/Not Resolved]
  - Pneumonia aspiration [Not Recovered/Not Resolved]
